FAERS Safety Report 14974023 (Version 2)
Quarter: 2018Q3

REPORT INFORMATION
  Report Type: Spontaneous
  Country: US (occurrence: US)
  Receive Date: 20180605
  Receipt Date: 20180824
  Transmission Date: 20181010
  Serious: Yes (Other)
  Sender: FDA-Public Use
  Company Number: US-PFIZER INC-2018225308

PATIENT
  Age: 59 Year
  Sex: Female

DRUGS (2)
  1. FLECTOR [Suspect]
     Active Substance: DICLOFENAC EPOLAMINE
     Indication: NECK PAIN
     Dosage: 10 MG, 2X/DAY
     Route: 062
     Dates: start: 201806
  2. PERCOCET [OXYCODONE HYDROCHLORIDE;PARACETAMOL] [Concomitant]
     Dosage: UNK, 3X/DAY
     Dates: start: 201609

REACTIONS (7)
  - Neck pain [Not Recovered/Not Resolved]
  - Pain [Not Recovered/Not Resolved]
  - Nerve compression [Not Recovered/Not Resolved]
  - Pain in extremity [Not Recovered/Not Resolved]
  - Systemic lupus erythematosus [Not Recovered/Not Resolved]
  - Fall [Not Recovered/Not Resolved]
  - Intervertebral disc protrusion [Not Recovered/Not Resolved]

NARRATIVE: CASE EVENT DATE: 201806
